FAERS Safety Report 12081420 (Version 1)
Quarter: 2016Q1

REPORT INFORMATION
  Report Type: Report from Study
  Country: ES (occurrence: ES)
  Receive Date: 20160216
  Receipt Date: 20160216
  Transmission Date: 20160526
  Serious: Yes (Other)
  Sender: FDA-Public Use
  Company Number: PHHO2013ES020424

PATIENT
  Age: 37 Year
  Sex: Female
  Weight: 62.4 kg

DRUGS (6)
  1. DABRAFENIB [Suspect]
     Active Substance: DABRAFENIB
     Dosage: 200 MG, UNK
     Route: 048
     Dates: start: 20130919
  2. TRAMETINIB [Suspect]
     Active Substance: TRAMETINIB
     Dosage: 1.5 MG, UNK
     Route: 048
     Dates: start: 20131010
  3. PREDNISONE. [Concomitant]
     Active Substance: PREDNISONE
     Indication: PYREXIA
     Dosage: 2.5 MG, QD
     Route: 048
     Dates: start: 20131108, end: 20131118
  4. PREDNISONE. [Concomitant]
     Active Substance: PREDNISONE
     Dosage: 5 MG, QD
     Route: 048
     Dates: start: 20131119
  5. DABRAFENIB [Suspect]
     Active Substance: DABRAFENIB
     Indication: MALIGNANT MELANOMA
     Dosage: 150 MG, BID
     Route: 048
     Dates: start: 20130523
  6. TRAMETINIB [Suspect]
     Active Substance: TRAMETINIB
     Indication: MALIGNANT MELANOMA
     Dosage: 2 MG, QD
     Route: 048
     Dates: start: 20130523

REACTIONS (2)
  - Chills [Recovered/Resolved]
  - Pyrexia [Recovered/Resolved]

NARRATIVE: CASE EVENT DATE: 20131115
